FAERS Safety Report 10344935 (Version 2)
Quarter: 2014Q3

REPORT INFORMATION
  Report Type: Spontaneous
  Country: US (occurrence: None)
  Receive Date: 20140724
  Receipt Date: 20140815
  Transmission Date: 20150326
  Serious: Yes (Other)
  Sender: FDA-Public Use
  Company Number: A1082090A

PATIENT
  Age: 73 Year
  Sex: Female

DRUGS (1)
  1. SODIUM FLUORIDE + POTASSIUM NITRATE TOOTHPASTE (SODIUM FLUORIDE + POTASSI) [Suspect]
     Active Substance: POTASSIUM NITRATE\SODIUM FLUORIDE
     Indication: SENSITIVITY OF TEETH
     Route: 004
     Dates: start: 20140707, end: 20140709

REACTIONS (11)
  - Fatigue [None]
  - Abdominal discomfort [None]
  - Epigastric discomfort [None]
  - Tongue discolouration [None]
  - Abdominal pain upper [None]
  - Oral discomfort [None]
  - Glossodynia [None]
  - Vomiting [None]
  - Chemical injury [None]
  - Sensory disturbance [None]
  - Diarrhoea [None]

NARRATIVE: CASE EVENT DATE: 20140708
